FAERS Safety Report 4270082-9 (Version None)
Quarter: 2004Q1

REPORT INFORMATION
  Report Type: 
  Country: None (occurrence: None)
  Receive Date: 20040114
  Receipt Date: 20030211
  Transmission Date: 20041129
  Serious: No
  Sender: FDA-Public Use
  Company Number: US-GLAXOSMITHKLINE-A0396295A

PATIENT
  Age: 41 Year
  Sex: Female

DRUGS (3)
  1. WELLBUTRIN [Suspect]
     Dosage: 150MG TWICE PER DAY
     Route: 048
     Dates: start: 20021101, end: 20021113
  2. GABITRIL [Suspect]
     Dosage: 2MG PER DAY
     Route: 048
     Dates: start: 20021101, end: 20021113
  3. AMBIEN [Concomitant]
     Dates: start: 20021101

REACTIONS (1)
  - URINARY RETENTION [None]
